FAERS Safety Report 13227564 (Version 3)
Quarter: 2017Q4

REPORT INFORMATION
  Report Type: Report from Study
  Country: None (occurrence: US)
  Receive Date: 20170213
  Receipt Date: 20171013
  Transmission Date: 20180320
  Serious: Yes (Hospitalization, Other)
  Sender: FDA-Public Use
  Company Number: US-ABBVIE-17K-163-1868047-00

PATIENT
  Sex: Male

DRUGS (2)
  1. HUMIRA [Suspect]
     Active Substance: ADALIMUMAB
     Indication: CROHN^S DISEASE
     Route: 058
  2. HUMIRA [Suspect]
     Active Substance: ADALIMUMAB
     Route: 058

REACTIONS (10)
  - Rheumatoid arthritis [Unknown]
  - Drug hypersensitivity [Unknown]
  - Atrial fibrillation [Unknown]
  - Osteoarthritis [Unknown]
  - Chronic obstructive pulmonary disease [Not Recovered/Not Resolved]
  - Acute kidney injury [Recovering/Resolving]
  - Defaecation urgency [Unknown]
  - Cataract [Unknown]
  - Crohn^s disease [Not Recovered/Not Resolved]
  - Hypertension [Unknown]
